FAERS Safety Report 23166249 (Version 3)
Quarter: 2023Q4

REPORT INFORMATION
  Report Type: Report from Study
  Country: US (occurrence: US)
  Receive Date: 20231109
  Receipt Date: 20231115
  Transmission Date: 20240110
  Serious: Yes (Other)
  Sender: FDA-Public Use
  Company Number: US-BEH-2023164831

PATIENT
  Sex: Male
  Weight: 86 kg

DRUGS (5)
  1. BERIPLEX P/N [Suspect]
     Active Substance: COAGULATION FACTOR IX HUMAN\COAGULATION FACTOR VII HUMAN\COAGULATION FACTOR X HUMAN\PROTEIN C\PROTEI
     Indication: Traumatic haemorrhage
     Dosage: 3000 INTERNATIONAL UNIT, SINGLE
     Route: 042
     Dates: start: 20231023, end: 20231023
  2. BERIPLEX P/N [Suspect]
     Active Substance: COAGULATION FACTOR IX HUMAN\COAGULATION FACTOR VII HUMAN\COAGULATION FACTOR X HUMAN\PROTEIN C\PROTEI
     Indication: Traumatic haemorrhage
     Dosage: 3000 INTERNATIONAL UNIT, SINGLE
     Route: 042
     Dates: start: 20231023, end: 20231023
  3. WHOLE BLOOD [Concomitant]
     Active Substance: WHOLE BLOOD
     Indication: Traumatic haemorrhage
     Dosage: 3000 MILLILITER
     Route: 042
     Dates: start: 20231023
  4. HUMAN PLASMA [Concomitant]
     Active Substance: HUMAN PLASMA
     Indication: Traumatic haemorrhage
     Dosage: 1000 MILLILITER
     Route: 042
     Dates: start: 20231023
  5. HUMAN RED BLOOD CELL [Concomitant]
     Active Substance: HUMAN RED BLOOD CELL
     Indication: Traumatic haemorrhage
     Dosage: 1250 MILLILITER
     Route: 042
     Dates: start: 20231023

REACTIONS (1)
  - Multiple organ dysfunction syndrome [Recovering/Resolving]

NARRATIVE: CASE EVENT DATE: 20231023
